FAERS Safety Report 8991882 (Version 1)
Quarter: 2012Q4

REPORT INFORMATION
  Report Type: 
  Country: CA (occurrence: CA)
  Receive Date: 20121231
  Receipt Date: 20121231
  Transmission Date: 20130627
  Serious: Yes (Other)
  Sender: FDA-Public Use
  Company Number: CA-ROCHE-1173674

PATIENT
  Sex: Female

DRUGS (10)
  1. XOLAIR [Suspect]
     Indication: ASTHMA
     Dosage: 375 mg, Q2W
     Route: 058
     Dates: start: 20090403
  2. XOLAIR [Suspect]
     Dosage: 375 mg, Q2W
     Route: 058
     Dates: start: 20090928
  3. XOLAIR [Suspect]
     Dosage: 375 mg, Q2W
     Route: 058
     Dates: start: 20091112
  4. XOLAIR [Suspect]
     Dosage: 375 mg, Q2W
     Route: 065
     Dates: start: 20091126
  5. XOLAIR [Suspect]
     Dosage: 375 mg, Q2W
     Route: 065
     Dates: start: 20100204
  6. PREDNISONE [Concomitant]
     Indication: PRODUCT USED FOR UNKNOWN INDICATION
     Route: 065
  7. PREDNISONE [Concomitant]
     Route: 065
  8. CORTISONE [Concomitant]
     Indication: PRODUCT USED FOR UNKNOWN INDICATION
  9. VENTOLIN [Concomitant]
     Indication: PRODUCT USED FOR UNKNOWN INDICATION
  10. SYMBICORT [Concomitant]
     Indication: PRODUCT USED FOR UNKNOWN INDICATION

REACTIONS (9)
  - Asthma [Unknown]
  - Pneumonia [Recovering/Resolving]
  - Weight decreased [Unknown]
  - Blood pressure decreased [Unknown]
  - H1N1 influenza [Unknown]
  - Hypersensitivity [Unknown]
  - Rhinorrhoea [Unknown]
  - Nasal congestion [Unknown]
  - Pertussis [Unknown]
